FAERS Safety Report 5594576-9 (Version None)
Quarter: 2008Q1

REPORT INFORMATION
  Report Type: 
  Country: None (occurrence: None)
  Receive Date: 20080115
  Receipt Date: 20080108
  Transmission Date: 20080703
  Serious: Yes (Death, Hospitalization)
  Sender: FDA-Public Use
  Company Number: 2007SP024729

PATIENT
  Age: 58 Year
  Sex: Female

DRUGS (2)
  1. TEMODAL [Suspect]
     Indication: METASTASES TO CENTRAL NERVOUS SYSTEM
     Dosage: 135 ; QD; PO
     Route: 048
     Dates: start: 20071126, end: 20071217
  2. TEMODAL [Suspect]
     Indication: NON-SMALL CELL LUNG CANCER
     Dosage: 135 ; QD; PO
     Route: 048
     Dates: start: 20071126, end: 20071217

REACTIONS (2)
  - GENERAL PHYSICAL HEALTH DETERIORATION [None]
  - VOMITING [None]
